FAERS Safety Report 10176539 (Version 1)
Quarter: 2014Q2

REPORT INFORMATION
  Report Type: Spontaneous
  Country: US (occurrence: None)
  Receive Date: 20140515
  Receipt Date: 20140515
  Transmission Date: 20141212
  Serious: Yes (Other)
  Sender: FDA-Public Use
  Company Number: None

PATIENT
  Age: 52 Year
  Sex: Male
  Weight: 88.45 kg

DRUGS (1)
  1. ROSADAN [Suspect]
     Indication: ERYTHEMA
     Dosage: TWICE A DAY/30DAYS, APPLIED TO A SURFACE, USUALLY THE SKIN
     Route: 061
     Dates: start: 20140409, end: 20140501

REACTIONS (2)
  - Rosacea [None]
  - Skin disorder [None]
